APPROVED DRUG PRODUCT: DIANEAL PD-2 W/ DEXTROSE 4.25% IN PLASTIC CONTAINER
Active Ingredient: CALCIUM CHLORIDE; DEXTROSE; MAGNESIUM CHLORIDE; SODIUM CHLORIDE; SODIUM LACTATE
Strength: 25.7MG/100ML;4.25GM/100ML;5.08MG/100ML;538MG/100ML;448MG/100ML
Dosage Form/Route: SOLUTION;INTRAPERITONEAL
Application: N020163 | Product #003 | TE Code: AT
Applicant: VANTIVE US HEALTHCARE LLC
Approved: Dec 4, 1992 | RLD: Yes | RS: No | Type: RX